FAERS Safety Report 21028202 (Version 2)
Quarter: 2022Q3

REPORT INFORMATION
  Report Type: Spontaneous
  Country: DE (occurrence: DE)
  Receive Date: 20220630
  Receipt Date: 20220719
  Transmission Date: 20221026
  Serious: Yes (Death, Life-Threatening, Hospitalization, Disabling, Other)
  Sender: FDA-Public Use
  Company Number: DE-NOVARTISPH-NVSC2022DE146523

PATIENT
  Age: 63 Year
  Sex: Female
  Weight: 70 kg

DRUGS (8)
  1. ASPIRIN [Suspect]
     Active Substance: ASPIRIN
     Indication: Product used for unknown indication
     Dosage: UNK (1X1 LONG-TERM MEDICATION)
     Route: 065
  2. METAMIZOLE [Suspect]
     Active Substance: METAMIZOLE
     Indication: Osteoporosis
     Dosage: UNK (DOSAGE FORM: ^FTA^ LONG-TERM MEDICATION )
     Route: 065
  3. HEXAMIDINE DIISETHIONATE [Suspect]
     Active Substance: HEXAMIDINE DIISETHIONATE
     Indication: Tonsillitis
     Dosage: UNK UNK, QD (1 PUFF 4 TIMES DAILY-EVERY 6 HOURS- ACCORDING TO THE PACKAGE LEAFLET)
     Route: 049
     Dates: start: 20220511, end: 20220515
  4. HEXAMIDINE DIISETHIONATE [Suspect]
     Active Substance: HEXAMIDINE DIISETHIONATE
     Indication: Oropharyngeal pain
  5. HEXAMIDINE DIISETHIONATE [Suspect]
     Active Substance: HEXAMIDINE DIISETHIONATE
     Indication: Nasopharyngitis
  6. PANTOPRAZOLE [Concomitant]
     Active Substance: PANTOPRAZOLE
     Indication: Prophylaxis
     Dosage: UNK (^DJ^ AS DOSAGE LONG-TERM MEDICATION)
     Route: 065
  7. EZETIMIBE [Concomitant]
     Active Substance: EZETIMIBE
     Indication: Blood cholesterol increased
     Dosage: UNK (^DJ^ AS DOSAGE LONG-TERM MEDICATION)
     Route: 065
  8. RAMIPRIL [Concomitant]
     Active Substance: RAMIPRIL
     Indication: Coronary artery disease
     Dosage: UNK (^DJ^ AS DOSAGELONG-TERM MEDICATION)
     Route: 065

REACTIONS (3)
  - Anaphylactic reaction [Fatal]
  - Brain injury [Not Recovered/Not Resolved]
  - Coma [Not Recovered/Not Resolved]

NARRATIVE: CASE EVENT DATE: 20220515
